FAERS Safety Report 12510266 (Version 19)
Quarter: 2020Q2

REPORT INFORMATION
  Report Type: Spontaneous
  Country: US (occurrence: US)
  Receive Date: 20160629
  Receipt Date: 20200407
  Transmission Date: 20200713
  Serious: No
  Sender: FDA-Public Use
  Company Number: US-ACTELION-A-NJ2016-138391

PATIENT
  Age: 63 Year
  Sex: Female
  Weight: 63.49 kg

DRUGS (8)
  1. TYVASO [Suspect]
     Active Substance: TREPROSTINIL
     Dosage: 3 BREATHS, QID
     Route: 055
  2. TYVASO [Suspect]
     Active Substance: TREPROSTINIL
     Dosage: 6 BREATHS, QID
     Route: 055
  3. FAMOTIDINE. [Concomitant]
     Active Substance: FAMOTIDINE
  4. OPSUMIT [Suspect]
     Active Substance: MACITENTAN
     Dosage: 10 MG, QD
     Route: 048
  5. TYVASO [Suspect]
     Active Substance: TREPROSTINIL
     Indication: PRODUCT USED FOR UNKNOWN INDICATION
     Route: 065
  6. TYVASO [Suspect]
     Active Substance: TREPROSTINIL
     Dosage: 9 BREATHS, QID
     Route: 055
  7. OPSUMIT [Suspect]
     Active Substance: MACITENTAN
     Indication: PULMONARY ARTERIAL HYPERTENSION
     Dosage: 10 MG, QD
     Route: 048
     Dates: start: 20141226
  8. SILDENAFIL. [Concomitant]
     Active Substance: SILDENAFIL

REACTIONS (18)
  - Stress [Unknown]
  - Flushing [Unknown]
  - Cough [Unknown]
  - Nasopharyngitis [Unknown]
  - Tooth abscess [Unknown]
  - Influenza [Unknown]
  - Tooth extraction [Unknown]
  - Throat irritation [Recovering/Resolving]
  - Multiple allergies [Unknown]
  - Anxiety [Unknown]
  - Headache [Unknown]
  - Taste disorder [Unknown]
  - Sinus disorder [Unknown]
  - Nasal congestion [Not Recovered/Not Resolved]
  - Palpitations [Unknown]
  - Oropharyngeal pain [Unknown]
  - Seasonal allergy [Unknown]
  - Sneezing [Unknown]

NARRATIVE: CASE EVENT DATE: 20181103
